FAERS Safety Report 6914948-7 (Version None)
Quarter: 2010Q3

REPORT INFORMATION
  Report Type: 
  Country: None (occurrence: None)
  Receive Date: 20100804
  Receipt Date: 20100724
  Transmission Date: 20110219
  Serious: Yes (Other)
  Sender: FDA-Public Use
  Company Number: 2010AP001541

PATIENT
  Age: 68 Year
  Sex: Male

DRUGS (3)
  1. CYCLOSPORINE [Suspect]
     Indication: RENAL TRANSPLANT
  2. PREDNISONE [Suspect]
     Indication: RENAL TRANSPLANT
  3. IMURAN [Suspect]
     Indication: RENAL TRANSPLANT

REACTIONS (4)
  - AORTIC STENOSIS [None]
  - BINOCULAR EYE MOVEMENT DISORDER [None]
  - CARDIAC MURMUR [None]
  - HYPERTHYROIDISM [None]
